FAERS Safety Report 5353327-3 (Version None)
Quarter: 2007Q2

REPORT INFORMATION
  Report Type: 
  Country: None (occurrence: None)
  Receive Date: 20070518
  Receipt Date: 20070221
  Transmission Date: 20071010
  Serious: No
  Sender: FDA-Public Use
  Company Number: TPA2007A00475

PATIENT
  Age: 88 Year
  Sex: Female
  Weight: 61.2356 kg

DRUGS (6)
  1. ROZEREM [Suspect]
     Dosage: SEE IMAGE, PER ORAL
     Route: 048
     Dates: start: 20061201
  2. DIGOXIN [Concomitant]
  3. COUMADIN [Concomitant]
  4. ZOCOR [Concomitant]
  5. UNK BLOOD PRESSURE MEDICATION ( ALL OTHER THERAPEUTIC PRODUCTS) [Concomitant]
  6. METOPROLOL TARTRATE [Concomitant]

REACTIONS (5)
  - AGGRESSION [None]
  - FEELING ABNORMAL [None]
  - HYPERTENSION [None]
  - LETHARGY [None]
  - UNDERDOSE [None]
